FAERS Safety Report 14758674 (Version 1)
Quarter: 2018Q2

REPORT INFORMATION
  Report Type: Spontaneous
  Country: BR (occurrence: BR)
  Receive Date: 20180413
  Receipt Date: 20180413
  Transmission Date: 20180711
  Serious: Yes (Other)
  Sender: FDA-Public Use
  Company Number: BR-PFIZER INC-2018150130

PATIENT
  Age: 3 Decade
  Sex: Female

DRUGS (4)
  1. SIILIF [Suspect]
     Active Substance: PINAVERIUM BROMIDE
     Indication: IRRITABLE BOWEL SYNDROME
     Dosage: 100 MG, BID
     Route: 048
     Dates: start: 201803, end: 201804
  2. TECTA [Suspect]
     Active Substance: PANTOPRAZOLE MAGNESIUM
     Dosage: 80 MG, QD
     Route: 048
  3. TECTA [Suspect]
     Active Substance: PANTOPRAZOLE MAGNESIUM
     Dosage: 40 MG, QD
     Route: 048
  4. TECTA [Suspect]
     Active Substance: PANTOPRAZOLE MAGNESIUM
     Indication: EROSIVE OESOPHAGITIS
     Dosage: 40 MG, QD
     Route: 048
     Dates: start: 201804

REACTIONS (7)
  - Wrong technique in product usage process [Unknown]
  - Erosive oesophagitis [Recovering/Resolving]
  - Dehydration [Recovered/Resolved]
  - Prescribed overdose [Unknown]
  - Dysphagia [Recovering/Resolving]
  - Diarrhoea [Unknown]
  - Weight decreased [Recovering/Resolving]

NARRATIVE: CASE EVENT DATE: 201804
